FAERS Safety Report 5293855-2 (Version None)
Quarter: 2007Q2

REPORT INFORMATION
  Report Type: 
  Country: None (occurrence: None)
  Receive Date: 20070411
  Receipt Date: 20070404
  Transmission Date: 20071010
  Serious: Yes (Death, Hospitalization)
  Sender: FDA-Public Use
  Company Number: FR-MERCK-0702FRA00015

PATIENT
  Age: 74 Year
  Sex: Male

DRUGS (5)
  1. VYTORIN [Suspect]
     Indication: HYPERCHOLESTEROLAEMIA
     Route: 048
     Dates: start: 20061101, end: 20070101
  2. MOLSIDOMINE [Concomitant]
     Indication: ANGINA PECTORIS
     Route: 048
  3. PERINDOPRIL [Concomitant]
     Indication: ANGINA PECTORIS
     Route: 048
  4. DILTIAZEM HYDROCHLORIDE [Concomitant]
     Indication: ANGINA PECTORIS
     Route: 048
  5. CLOPIDOGREL BISULFATE [Concomitant]
     Indication: PROPHYLAXIS
     Route: 048

REACTIONS (1)
  - METASTATIC NEOPLASM [None]
